FAERS Safety Report 19903970 (Version 7)
Quarter: 2022Q4

REPORT INFORMATION
  Report Type: Spontaneous
  Country: BR (occurrence: BR)
  Receive Date: 20211001
  Receipt Date: 20221213
  Transmission Date: 20230113
  Serious: Yes (Other)
  Sender: FDA-Public Use
  Company Number: BR-GLAXOSMITHKLINE-BR2016GSK005023

PATIENT

DRUGS (7)
  1. BENLYSTA [Suspect]
     Active Substance: BELIMUMAB
     Indication: Systemic lupus erythematosus
     Dosage: UNK
     Dates: start: 20150507
  2. BENLYSTA [Suspect]
     Active Substance: BELIMUMAB
     Indication: Systemic lupus erythematosus
     Dosage: 120 MG
     Route: 042
     Dates: start: 20150507
  3. AMOXICILLIN [Suspect]
     Active Substance: AMOXICILLIN
     Indication: Pharyngeal inflammation
     Dosage: 500 MG, BID
  4. THALIDOMIDE [Suspect]
     Active Substance: THALIDOMIDE
     Indication: Product used for unknown indication
     Dosage: UNK
  5. METAMIZOLE SODIUM [Suspect]
     Active Substance: METAMIZOLE SODIUM
     Indication: Pharyngeal inflammation
     Dosage: UNK, TID
  6. CORTISONE [Concomitant]
     Active Substance: CORTISONE
     Indication: Product used for unknown indication
     Dosage: 5 MG, UNK
  7. PREGABALIN [Concomitant]
     Active Substance: PREGABALIN
     Indication: Product used for unknown indication
     Dosage: 150 MG, QOD

REACTIONS (23)
  - Systemic lupus erythematosus [Not Recovered/Not Resolved]
  - Neuropathy peripheral [Unknown]
  - Sensory loss [Unknown]
  - Movement disorder [Unknown]
  - Pain in extremity [Not Recovered/Not Resolved]
  - Influenza [Not Recovered/Not Resolved]
  - Sinusitis [Not Recovered/Not Resolved]
  - Emotional distress [Unknown]
  - Malaise [Unknown]
  - Fibromyalgia [Unknown]
  - Nasopharyngitis [Recovered/Resolved]
  - Wheezing [Unknown]
  - Headache [Unknown]
  - Catarrh [Unknown]
  - Throat irritation [Unknown]
  - Memory impairment [Not Recovered/Not Resolved]
  - Pharyngeal inflammation [Unknown]
  - Cough [Recovered/Resolved]
  - Arthralgia [Not Recovered/Not Resolved]
  - Skin disorder [Not Recovered/Not Resolved]
  - Drug ineffective [Unknown]
  - Inappropriate schedule of product administration [Unknown]
  - Product use in unapproved indication [Unknown]
